FAERS Safety Report 24804666 (Version 1)
Quarter: 2025Q1

REPORT INFORMATION
  Report Type: Report from Study
  Country: US (occurrence: US)
  Receive Date: 20250103
  Receipt Date: 20250103
  Transmission Date: 20250409
  Serious: Yes (Other)
  Sender: BAYER HEALTHCARE PHARMACEUTICALS INC.
  Company Number: US-BAYER-2024A184124

PATIENT
  Age: 52 Year
  Sex: Male

DRUGS (11)
  1. NUBEQA [Suspect]
     Active Substance: DAROLUTAMIDE
     Indication: Prostate cancer
     Dosage: 600 MG, BID WITH MEALS
     Route: 048
     Dates: start: 20230313
  2. LOSARTAN [Concomitant]
     Active Substance: LOSARTAN
  3. LORAZEPAM [Concomitant]
     Active Substance: LORAZEPAM
  4. TAMSULOSIN [Concomitant]
     Active Substance: TAMSULOSIN
  5. OMEPRAZOLE [Concomitant]
     Active Substance: OMEPRAZOLE
  6. VITAMINS [Concomitant]
     Active Substance: VITAMINS
  7. CALCIUM CITRATE [Concomitant]
     Active Substance: CALCIUM CITRATE
  8. TADALAFIL [Concomitant]
     Active Substance: TADALAFIL
  9. LUPRON DEPOT [Concomitant]
     Active Substance: LEUPROLIDE ACETATE
  10. CITALOPRAM [Concomitant]
     Active Substance: CITALOPRAM
  11. NAPROXEN [Concomitant]
     Active Substance: NAPROXEN

REACTIONS (2)
  - Loss of consciousness [Unknown]
  - Malaise [Unknown]
